FAERS Safety Report 14015213 (Version 1)
Quarter: 2017Q3

REPORT INFORMATION
  Report Type: Spontaneous
  Country: US (occurrence: US)
  Receive Date: 20170927
  Receipt Date: 20170927
  Transmission Date: 20171128
  Serious: Yes (Life-Threatening)
  Sender: FDA-Public Use
  Company Number: None

PATIENT
  Age: 58 Year
  Sex: Male
  Weight: 46.6 kg

DRUGS (1)
  1. OXYCODONE/ACETAMINOPHEN [Suspect]
     Active Substance: ACETAMINOPHEN\OXYCODONE HYDROCHLORIDE
     Indication: HEADACHE
     Dosage: ?          OTHER FREQUENCY:ONCE;?
     Route: 048
     Dates: start: 20170908, end: 20170908

REACTIONS (7)
  - Chest pain [None]
  - Pneumonia [None]
  - Dyspnoea [None]
  - Throat tightness [None]
  - Bacteraemia [None]
  - Headache [None]
  - Drug hypersensitivity [None]

NARRATIVE: CASE EVENT DATE: 20170908
